FAERS Safety Report 8405959-3 (Version None)
Quarter: 2012Q2

REPORT INFORMATION
  Report Type: 
  Country: None (occurrence: None)
  Receive Date: 20120604
  Receipt Date: 20120523
  Transmission Date: 20120825
  Serious: Yes (Hospitalization, Other)
  Sender: FDA-Public Use
  Company Number: US-JNJFOC-20120414270

PATIENT
  Sex: Female
  Weight: 45 kg

DRUGS (9)
  1. REMICADE [Suspect]
     Route: 042
     Dates: start: 20120224
  2. REMICADE [Suspect]
     Route: 042
     Dates: start: 20120123
  3. MEDROL [Concomitant]
     Indication: CROHN'S DISEASE
     Route: 065
     Dates: start: 20110601
  4. BIRTH CONTROL PILL [Concomitant]
     Route: 065
     Dates: start: 20100801
  5. VSL3 [Concomitant]
     Indication: CROHN'S DISEASE
     Route: 065
     Dates: start: 20110601, end: 20120403
  6. REMICADE [Suspect]
     Dosage: 4TH INFUSION
     Route: 042
     Dates: start: 20120323
  7. REMICADE [Suspect]
     Indication: CROHN'S DISEASE
     Route: 042
     Dates: start: 20120113
  8. NEXIUM [Concomitant]
     Indication: DYSPEPSIA
     Route: 065
     Dates: start: 20111101, end: 20120403
  9. MIRALAX [Concomitant]
     Indication: CONSTIPATION
     Dosage: 1 TABLE SPOON
     Route: 065
     Dates: start: 20111201

REACTIONS (3)
  - VIRAL INFECTION [None]
  - PANCREATITIS [None]
  - UPPER RESPIRATORY TRACT INFECTION [None]
